FAERS Safety Report 15775792 (Version 1)
Quarter: 2018Q4

REPORT INFORMATION
  Report Type: Spontaneous
  Country: CN (occurrence: CN)
  Receive Date: 20181231
  Receipt Date: 20181231
  Transmission Date: 20190205
  Serious: Yes (Other)
  Sender: FDA-Public Use
  Company Number: CN-MACLEODS PHARMACEUTICALS US LTD-MAC2018019446

PATIENT

DRUGS (7)
  1. METHYLPREDNISOLONE. [Suspect]
     Active Substance: METHYLPREDNISOLONE
     Indication: CUTANEOUS ANTHRAX
     Dosage: 40 MILLIGRAM, QD
     Route: 065
  2. PENICILLIN G [Suspect]
     Active Substance: PENICILLIN G
     Dosage: UNK,  4 ? 6.4 MILLION U/DAY
     Route: 065
  3. LEVOFLOXACIN. [Suspect]
     Active Substance: LEVOFLOXACIN
     Indication: CUTANEOUS ANTHRAX
     Dosage: UNK (INFUSION)
     Route: 041
  4. LEVOFLOXACIN. [Suspect]
     Active Substance: LEVOFLOXACIN
     Dosage: 600 MILLIGRAM, QD
     Route: 042
  5. PENICILLIN [Suspect]
     Active Substance: PENICILLIN
     Indication: CUTANEOUS ANTHRAX
     Dosage: UNK
     Route: 041
  6. PENICILLIN G [Suspect]
     Active Substance: PENICILLIN G
     Indication: CUTANEOUS ANTHRAX
     Dosage: UNK, (4X 4 MILLION U/DAY)
     Route: 065
  7. MAGNESIUM ISOGLYCYRRHIZINATE [Concomitant]
     Active Substance: MAGNESIUM ISOGLYCYRRHIZINATE
     Indication: PRODUCT USED FOR UNKNOWN INDICATION
     Dosage: 150 MILLIGRAM, QD
     Route: 065

REACTIONS (2)
  - Oedema [Recovering/Resolving]
  - Blister [Recovering/Resolving]
